FAERS Safety Report 21383250 (Version 2)
Quarter: 2022Q4

REPORT INFORMATION
  Report Type: Report from Study
  Country: US (occurrence: US)
  Receive Date: 20220927
  Receipt Date: 20221124
  Transmission Date: 20230112
  Serious: Yes (Other)
  Sender: FDA-Public Use
  Company Number: US-ABBVIE-4131118

PATIENT
  Age: 57 Year
  Sex: Female
  Weight: 102.05 kg

DRUGS (14)
  1. HUMIRA [Suspect]
     Active Substance: ADALIMUMAB
     Indication: Rheumatoid arthritis
     Dosage: FORM STRENGTH - 40 MILLIGRAM
     Route: 058
     Dates: start: 20201013, end: 20220906
  2. NALTREXONE [Concomitant]
     Active Substance: NALTREXONE
     Indication: Sleep disorder
     Dosage: LOW DOSE ?4.5 MILLIGRAM
  3. PREDNISONE [Concomitant]
     Active Substance: PREDNISONE
     Indication: Product used for unknown indication
     Dosage: 15 MILLIGRAM?(1ST TREATMENT)
     Dates: start: 20220905, end: 20220911
  4. PREDNISONE [Concomitant]
     Active Substance: PREDNISONE
     Indication: Product used for unknown indication
     Dosage: 20 MILLIGRAM?(1ST TREATMENT)
     Dates: start: 20220829, end: 20220904
  5. PREDNISONE [Concomitant]
     Active Substance: PREDNISONE
     Indication: Product used for unknown indication
     Dosage: 10 MILLIGRAM?(1ST TREATMENT)
     Dates: start: 20220912, end: 20220918
  6. PREDNISONE [Concomitant]
     Active Substance: PREDNISONE
     Indication: Product used for unknown indication
     Dosage: 5 MILLIGRAM?(1ST TREATMENT)
     Dates: start: 20220919, end: 20220925
  7. SIMPONI [Suspect]
     Active Substance: GOLIMUMAB
     Indication: Product used for unknown indication
     Route: 065
     Dates: start: 20220916, end: 2022
  8. PREDNISONE [Concomitant]
     Active Substance: PREDNISONE
     Indication: Product used for unknown indication
     Dosage: 60 MILLIGRAM? (2ND TREATMENT)
     Dates: start: 20221013, end: 20221019
  9. PREDNISONE [Concomitant]
     Active Substance: PREDNISONE
     Indication: Product used for unknown indication
     Dosage: 10 MILLIGRAM? (2ND TREATMENT)
     Dates: start: 20221024, end: 20221024
  10. PREDNISONE [Concomitant]
     Active Substance: PREDNISONE
     Indication: Product used for unknown indication
     Dosage: 20 MILLIGRAM? (2ND TREATMENT)
     Dates: start: 20221023, end: 20221023
  11. PREDNISONE [Concomitant]
     Active Substance: PREDNISONE
     Indication: Product used for unknown indication
     Dosage: 50 MILLIGRAM? (2ND TREATMENT)
     Dates: start: 20221020, end: 20221020
  12. PREDNISONE [Concomitant]
     Active Substance: PREDNISONE
     Indication: Product used for unknown indication
     Dosage: 40 MILLIGRAM? (2ND TREATMENT)
     Dates: start: 20221021, end: 20221021
  13. PREDNISONE [Concomitant]
     Active Substance: PREDNISONE
     Indication: Product used for unknown indication
     Dosage: 30 MILLIGRAM? (2ND TREATMENT)
     Dates: start: 20221022, end: 20221022
  14. METHOTREXATE [Concomitant]
     Active Substance: METHOTREXATE
     Indication: Product used for unknown indication
     Dosage: 15 MILLIGRAM

REACTIONS (3)
  - Deafness [Not Recovered/Not Resolved]
  - Blood pressure increased [Recovering/Resolving]
  - Inflammation [Unknown]

NARRATIVE: CASE EVENT DATE: 20220301
